FAERS Safety Report 25331318 (Version 2)
Quarter: 2025Q2

REPORT INFORMATION
  Report Type: Spontaneous
  Country: AR (occurrence: AR)
  Receive Date: 20250519
  Receipt Date: 20250530
  Transmission Date: 20250717
  Serious: No
  Sender: SANDOZ
  Company Number: AR-002147023-NVSC2025AR079121

PATIENT
  Sex: Female

DRUGS (2)
  1. FULVESTRANT [Suspect]
     Active Substance: FULVESTRANT
     Indication: Breast cancer metastatic
     Dosage: UNK, QMO
     Route: 065
  2. KISQALI [Suspect]
     Active Substance: RIBOCICLIB SUCCINATE
     Indication: Breast cancer metastatic
     Dosage: 600 MG, QD (BY MOUTH)
     Route: 048
     Dates: start: 20241114

REACTIONS (1)
  - No adverse event [Unknown]
